FAERS Safety Report 22095593 (Version 3)
Quarter: 2023Q2

REPORT INFORMATION
  Report Type: Spontaneous
  Country: US (occurrence: US)
  Receive Date: 20230314
  Receipt Date: 20230425
  Transmission Date: 20230721
  Serious: No
  Sender: FDA-Public Use
  Company Number: US-PFIZER INC-202300102412

PATIENT
  Age: 6 Year
  Sex: Male
  Weight: 14.97 kg

DRUGS (1)
  1. GENOTROPIN [Suspect]
     Active Substance: SOMATROPIN
     Indication: Silver-Russell syndrome
     Dosage: 0.8MG AND 1MG UNDER SKIN DAILY. SHE THOUGHT IT WAS 0.9 UNDER SKIN DAILY THEN DIAL IT TO 9
     Route: 058
     Dates: start: 20200702

REACTIONS (5)
  - Off label use [Unknown]
  - Product prescribing error [Unknown]
  - Incorrect dose administered [Unknown]
  - Device use issue [Unknown]
  - Device issue [Unknown]
